FAERS Safety Report 25216058 (Version 1)
Quarter: 2025Q2

REPORT INFORMATION
  Report Type: Spontaneous
  Country: US (occurrence: US)
  Receive Date: 20250418
  Receipt Date: 20250418
  Transmission Date: 20250717
  Serious: No
  Sender: ROCHE
  Company Number: US-ROCHE-10000251859

PATIENT
  Age: 12 Year
  Sex: Male

DRUGS (2)
  1. NUTROPIN [Suspect]
     Active Substance: SOMATROPIN
     Indication: Growth hormone deficiency
     Dosage: AT NIGHT?NUTROPIN 10MG/ 2ML NUSPIN PEN
     Route: 058
  2. NORDITROPIN [Concomitant]
     Active Substance: SOMATROPIN
     Indication: Growth hormone deficiency

REACTIONS (4)
  - Product dose omission issue [Unknown]
  - Device defective [Unknown]
  - Liquid product physical issue [Unknown]
  - No adverse event [Unknown]

NARRATIVE: CASE EVENT DATE: 20250327
